FAERS Safety Report 13204579 (Version 2)
Quarter: 2017Q2

REPORT INFORMATION
  Report Type: Spontaneous
  Country: US (occurrence: US)
  Receive Date: 20170209
  Receipt Date: 20170407
  Transmission Date: 20170830
  Serious: Yes (Other)
  Sender: FDA-Public Use
  Company Number: US-BAYER-2017-019305

PATIENT
  Sex: Male
  Weight: 98.87 kg

DRUGS (17)
  1. ALDACTONE A [Concomitant]
     Active Substance: SPIRONOLACTONE
     Dosage: 25 MG, OM(3 REFILLS)
  2. CHROMIUM PICOLINATE [Concomitant]
     Active Substance: CHROMIUM PICOLINATE
     Dosage: 500 UNK, BID(0 REFILL)
  3. LOVASTATIN. [Concomitant]
     Active Substance: LOVASTATIN
     Dosage: 20 MG, HS(1 REFILLS)
  4. L-TYROSINE [Concomitant]
     Dosage: 500 MG, QD(0 REFILL)
  5. ALLOPURINOL. [Concomitant]
     Active Substance: ALLOPURINOL
     Dosage: 100 MG, Q2HR(11 REFILLS)
  6. AMLODIPINE BESYLATE. [Concomitant]
     Active Substance: AMLODIPINE BESYLATE
     Dosage: 5 MG, QD(3 REFILLS)
  7. VITAMIN B12 [Concomitant]
     Active Substance: CYANOCOBALAMIN
     Dosage: UNK, QD(0REFILLS
  8. LASIX [Concomitant]
     Active Substance: FUROSEMIDE
     Dosage: 40 MG, QD(1 REFILLS)
  9. REVATIO [Concomitant]
     Active Substance: SILDENAFIL CITRATE
     Indication: PULMONARY HYPERTENSION
  10. ATENOLOL. [Concomitant]
     Active Substance: ATENOLOL
     Dosage: 50 MG, QD(1 REFILLS)
  11. ALLOPURINOL. [Concomitant]
     Active Substance: ALLOPURINOL
     Dosage: 100 MG, HS(3 REFILLS)
  12. CLINDAMYCIN. [Concomitant]
     Active Substance: CLINDAMYCIN
     Dosage: 300 MG, UNK(0 REFILLS)
  13. VITAMIN D3 [Concomitant]
     Active Substance: CHOLECALCIFEROL
     Dosage: 400 IU, QD(0 REFILLS)
  14. KRILL OIL [Concomitant]
     Active Substance: DIETARY SUPPLEMENT
     Dosage: 300 MG, QD(0 REFILLS)
  15. OMEPRAZOLE. [Concomitant]
     Active Substance: OMEPRAZOLE
     Dosage: 40 MG, HS(3 REFILLS)
  16. ALEVE [Suspect]
     Active Substance: NAPROXEN SODIUM
     Dosage: UNK
  17. BAYER LOW DOSE [Concomitant]
     Active Substance: ASPIRIN
     Dosage: 81 MG, QD(0 REFILLS)
     Route: 048

REACTIONS (11)
  - Blood urea increased [None]
  - Spinal pain [None]
  - Pneumonia [Recovered/Resolved]
  - Ascites [None]
  - Blood creatinine increased [None]
  - Back pain [None]
  - Renal impairment [None]
  - Pleuritic pain [Recovered/Resolved]
  - Groin pain [None]
  - Abdominal distension [None]
  - Product use issue [Unknown]
